FAERS Safety Report 24350591 (Version 1)
Quarter: 2024Q3

REPORT INFORMATION
  Report Type: Spontaneous
  Country: US (occurrence: US)
  Receive Date: 20240923
  Receipt Date: 20240923
  Transmission Date: 20241016
  Serious: No
  Sender: ROCHE
  Company Number: US-ROCHE-3518503

PATIENT
  Age: 82 Year
  Sex: Female

DRUGS (3)
  1. HERCEPTIN [Suspect]
     Active Substance: TRASTUZUMAB
     Indication: Product used for unknown indication
     Route: 065
  2. TUKYSA [Suspect]
     Active Substance: TUCATINIB
     Indication: Colon cancer metastatic
     Route: 065
  3. TUKYSA [Suspect]
     Active Substance: TUCATINIB
     Route: 065

REACTIONS (14)
  - Renal impairment [Unknown]
  - Ill-defined disorder [Unknown]
  - COVID-19 [Unknown]
  - Blood creatine increased [Unknown]
  - Haemoglobin decreased [Unknown]
  - Haematocrit decreased [Unknown]
  - Lymphocyte count decreased [Unknown]
  - Monocyte count increased [Unknown]
  - Blood glucose increased [Unknown]
  - Blood urea increased [Unknown]
  - Blood calcium increased [Unknown]
  - Aspartate aminotransferase increased [Unknown]
  - Blood phosphorus decreased [Unknown]
  - Carcinoembryonic antigen increased [Unknown]

NARRATIVE: CASE EVENT DATE: 20231001
